FAERS Safety Report 18930335 (Version 4)
Quarter: 2021Q1

REPORT INFORMATION
  Report Type: Spontaneous
  Country: IL (occurrence: IL)
  Receive Date: 20210223
  Receipt Date: 20210305
  Transmission Date: 20210420
  Serious: Yes (Other)
  Sender: FDA-Public Use
  Company Number: IL-METHAPHARM-2021-IL-000001

PATIENT
  Age: 54 Year
  Sex: Female

DRUGS (6)
  1. PROVOCHOLINE [Suspect]
     Active Substance: METHACHOLINE CHLORIDE
     Indication: PULMONARY FUNCTION CHALLENGE TEST
     Dates: start: 20200309
  2. CIPRALEX [Concomitant]
     Active Substance: ESCITALOPRAM OXALATE
  3. CILARIL PLUS [Concomitant]
  4. LORATADIM [Concomitant]
  5. LIPITOR [Concomitant]
     Active Substance: ATORVASTATIN CALCIUM
  6. CALCIUM?D?SOURCE [Concomitant]

REACTIONS (4)
  - Product quality issue [Unknown]
  - Vomiting [Unknown]
  - Headache [Unknown]
  - Nausea [Unknown]

NARRATIVE: CASE EVENT DATE: 20200309
